FAERS Safety Report 8097752-9 (Version None)
Quarter: 2012Q1

REPORT INFORMATION
  Report Type: 
  Country: None (occurrence: None)
  Receive Date: 20120128
  Receipt Date: 20110718
  Transmission Date: 20120608
  Serious: No
  Sender: FDA-Public Use
  Company Number: US-ABBOTT-11P-163-0839945-00

PATIENT
  Sex: Female
  Weight: 81.72 kg

DRUGS (3)
  1. DICLOMEN CREAM [Concomitant]
     Indication: PSORIASIS
  2. HUMIRA [Suspect]
     Route: 058
     Dates: start: 20110714
  3. HUMIRA [Suspect]
     Indication: PSORIASIS
     Route: 058
     Dates: start: 20110601, end: 20110701

REACTIONS (2)
  - HEAT RASH [None]
  - RASH PRURITIC [None]
